FAERS Safety Report 10576017 (Version 1)
Quarter: 2014Q4

REPORT INFORMATION
  Report Type: Spontaneous
  Country: US (occurrence: None)
  Receive Date: 20141110
  Receipt Date: 20141110
  Transmission Date: 20150529
  Serious: Yes (Hospitalization)
  Sender: FDA-Public Use
  Company Number: None

PATIENT
  Age: 74 Year
  Sex: Male
  Weight: 98.86 kg

DRUGS (2)
  1. RIVAROXABAN [Suspect]
     Active Substance: RIVAROXABAN
     Indication: CARDIOVASCULAR DISORDER
     Route: 048
     Dates: start: 20140626, end: 20140630
  2. RIVAROXABAN [Suspect]
     Active Substance: RIVAROXABAN
     Indication: SURGERY
     Route: 048
     Dates: start: 20140626, end: 20140630

REACTIONS (4)
  - Pericardial effusion [None]
  - Treatment noncompliance [None]
  - Economic problem [None]
  - Cardiac tamponade [None]

NARRATIVE: CASE EVENT DATE: 20140630
